FAERS Safety Report 4343530-3 (Version None)
Quarter: 2004Q2

REPORT INFORMATION
  Report Type: 
  Country: None (occurrence: None)
  Receive Date: 20040419
  Receipt Date: 20040405
  Transmission Date: 20050107
  Serious: Yes (Hospitalization, Other)
  Sender: FDA-Public Use
  Company Number: HQWYE368706APR04

PATIENT
  Age: 48 Year
  Sex: Female
  Weight: 68.1 kg

DRUGS (1)
  1. PREMARIN [Suspect]
     Indication: OESTROGEN REPLACEMENT THERAPY
     Dosage: BEGAN ON HE HIGHEST DOSE AND REDUCED TO THE LOWEST DOSE, ORAL
     Route: 048
     Dates: start: 19720101, end: 19870101

REACTIONS (3)
  - DRUG HYPERSENSITIVITY [None]
  - OSTEITIS DEFORMANS [None]
  - PAGET'S DISEASE OF THE BREAST [None]
